FAERS Safety Report 14263633 (Version 3)
Quarter: 2017Q4

REPORT INFORMATION
  Report Type: Spontaneous
  Country: US (occurrence: US)
  Receive Date: 20171208
  Receipt Date: 20171228
  Transmission Date: 20180321
  Serious: Yes (Other)
  Sender: FDA-Public Use
  Company Number: US-AMGEN-USASP2017180575

PATIENT
  Age: 78 Year
  Sex: Female
  Weight: 92.5 kg

DRUGS (1)
  1. NPLATE [Suspect]
     Active Substance: ROMIPLOSTIM
     Indication: IMMUNE THROMBOCYTOPENIC PURPURA
     Dosage: 1 MUG/KG, UNK
     Route: 065
     Dates: start: 20171027

REACTIONS (2)
  - Drug effect decreased [Unknown]
  - Platelet transfusion [Unknown]

NARRATIVE: CASE EVENT DATE: 2017
